FAERS Safety Report 15037070 (Version 1)
Quarter: 2018Q2

REPORT INFORMATION
  Report Type: Report from Study
  Country: CA (occurrence: CA)
  Receive Date: 20180620
  Receipt Date: 20180620
  Transmission Date: 20180711
  Serious: Yes (Death, Hospitalization, Other)
  Sender: FDA-Public Use
  Company Number: CA-BRISTOL-MYERS SQUIBB COMPANY-BMS-2017-107720

PATIENT
  Age: 27 Year
  Sex: Male

DRUGS (2)
  1. YERVOY [Suspect]
     Active Substance: IPILIMUMAB
     Indication: MALIGNANT MELANOMA
     Dosage: 360 MG, Q3WK
     Route: 042
     Dates: start: 20170915, end: 20180104
  2. NIVOLUMAB [Suspect]
     Active Substance: NIVOLUMAB
     Indication: MALIGNANT MELANOMA
     Dosage: 120 MG, Q3WK
     Route: 042
     Dates: start: 20170915, end: 20180104

REACTIONS (9)
  - Nausea [Recovering/Resolving]
  - Rash [Recovering/Resolving]
  - Diarrhoea [Recovering/Resolving]
  - Headache [Recovered/Resolved]
  - Death [Fatal]
  - Fatigue [Recovering/Resolving]
  - Cough [Unknown]
  - Back pain [Recovered/Resolved]
  - Hospitalisation [Unknown]

NARRATIVE: CASE EVENT DATE: 20171120
